FAERS Safety Report 22535632 (Version 1)
Quarter: 2023Q2

REPORT INFORMATION
  Report Type: Spontaneous
  Country: US (occurrence: None)
  Receive Date: 20230606
  Receipt Date: 20230606
  Transmission Date: 20230721
  Serious: Yes (Hospitalization)
  Sender: FDA-Public Use
  Company Number: None

PATIENT
  Sex: Female

DRUGS (5)
  1. OCREVUS [Suspect]
     Active Substance: OCRELIZUMAB
     Indication: Multiple sclerosis
     Dosage: OTHER QUANTITY : 300MG/10ML; 600MG;?OTHER FREQUENCY : EVERY 6 MONTHS;?
     Route: 042
     Dates: start: 20201001
  2. CHERATUSSIN SYP [Concomitant]
  3. CLARITHROMYC TAB [Concomitant]
  4. REBIF [Concomitant]
  5. TECFIDERA [Concomitant]

REACTIONS (1)
  - Adverse drug reaction [None]
